APPROVED DRUG PRODUCT: GLIMEPIRIDE
Active Ingredient: GLIMEPIRIDE
Strength: 8MG
Dosage Form/Route: TABLET;ORAL
Application: A077370 | Product #004 | TE Code: AB
Applicant: PRINSTON PHARMACEUTICAL INC
Approved: Dec 23, 2005 | RLD: No | RS: No | Type: RX